FAERS Safety Report 19818060 (Version 6)
Quarter: 2022Q3

REPORT INFORMATION
  Report Type: Spontaneous
  Country: US (occurrence: US)
  Receive Date: 20210911
  Receipt Date: 20220809
  Transmission Date: 20221026
  Serious: Yes (Hospitalization, Other)
  Sender: FDA-Public Use
  Company Number: US-UNITED THERAPEUTICS-UNT-2021-017861

PATIENT
  Age: 75 Year
  Sex: Female
  Weight: 50.794 kg

DRUGS (11)
  1. TYVASO [Suspect]
     Active Substance: TREPROSTINIL
     Indication: Pulmonary arterial hypertension
     Dosage: UNK
     Dates: start: 20170929
  2. TYVASO [Suspect]
     Active Substance: TREPROSTINIL
     Dosage: 18-54 ?G, QID
  3. TYVASO [Suspect]
     Active Substance: TREPROSTINIL
     Dosage: UNK
  4. REMODULIN [Suspect]
     Active Substance: TREPROSTINIL
     Indication: Pulmonary arterial hypertension
     Dosage: UNK, CONTINUING
     Route: 058
     Dates: start: 20220412
  5. REMODULIN [Suspect]
     Active Substance: TREPROSTINIL
     Dosage: 0.0249 ?G/KG, CONTINUING
     Route: 058
     Dates: start: 2022
  6. REMODULIN [Suspect]
     Active Substance: TREPROSTINIL
     Dosage: UNK, CONTINUING (DOSE DECREASED)
     Route: 058
     Dates: start: 202207, end: 2022
  7. REMODULIN [Suspect]
     Active Substance: TREPROSTINIL
     Dosage: 0.0249 ?G/KG, CONTINUING
     Route: 058
     Dates: start: 2022
  8. TRACLEER [Concomitant]
     Active Substance: BOSENTAN
     Indication: Product used for unknown indication
     Dosage: UNK
     Route: 065
  9. AMLODIPINE [Concomitant]
     Active Substance: AMLODIPINE BESYLATE
     Indication: Product used for unknown indication
     Dosage: UNK
     Route: 065
  10. ELIQUIS [Concomitant]
     Active Substance: APIXABAN
     Indication: Product used for unknown indication
     Dosage: UNK
     Route: 065
  11. VENTAVIS [Concomitant]
     Active Substance: ILOPROST
     Indication: Product used for unknown indication
     Dosage: UNK
     Route: 065

REACTIONS (3)
  - Lung neoplasm malignant [Not Recovered/Not Resolved]
  - Metastases to bone [Unknown]
  - Cough [Unknown]

NARRATIVE: CASE EVENT DATE: 20210828
